FAERS Safety Report 4327703-1 (Version None)
Quarter: 2004Q1

REPORT INFORMATION
  Report Type: 
  Country: None (occurrence: None)
  Receive Date: 20040325
  Receipt Date: 20040311
  Transmission Date: 20041129
  Serious: Yes (Hospitalization, Other)
  Sender: FDA-Public Use
  Company Number: 2004016487

PATIENT
  Age: 75 Year
  Sex: Male
  Weight: 78 kg

DRUGS (7)
  1. FLUCONAZOLE [Suspect]
     Indication: ILL-DEFINED DISORDER
     Dosage: 400 MG (DAILY), ORAL
     Route: 048
     Dates: start: 20040103, end: 20040120
  2. TIENAM (IMIPENEM, CILASTATIN) [Suspect]
     Indication: ILL-DEFINED DISORDER
     Dosage: 1 GRAM (DAILY), ORAL
     Route: 048
     Dates: start: 20040110, end: 20040120
  3. AMIODARONE HCL [Concomitant]
  4. FERROUS FUMARATE [Concomitant]
  5. NICRDIPINE HYDROCHLORIDE (NICRADIPINE HYDROCHLORIDE) [Concomitant]
  6. HEPARIN-FRACTION, SODIUM SALT (HEPARIN-FRACTION, SODIUM SALT) [Concomitant]
  7. ACETAMINOPHEN [Concomitant]

REACTIONS (1)
  - BONE MARROW TOXICITY [None]
